FAERS Safety Report 18129266 (Version 1)
Quarter: 2020Q3

REPORT INFORMATION
  Report Type: Report from Study
  Country: IT (occurrence: IT)
  Receive Date: 20200810
  Receipt Date: 20200810
  Transmission Date: 20201103
  Serious: Yes (Death)
  Sender: FDA-Public Use
  Company Number: IT-PFIZER INC-2020300239

PATIENT

DRUGS (2)
  1. DOXORUBICIN HCL [Suspect]
     Active Substance: DOXORUBICIN HYDROCHLORIDE
     Indication: METASTATIC GASTRIC CANCER
     Dosage: 1.5 MG/M2, CYCLIC (DOXORUBICIN 1.5 MG/M2 BODY SURFACE IN 50 ML NACL 0.9%)
  2. CISPLATIN. [Suspect]
     Active Substance: CISPLATIN
     Indication: METASTATIC GASTRIC CANCER
     Dosage: 7.5 MG/M2, CYCLIC (CISPLATIN 7.5 MG/M2 IN 150 ML NACL 0.9%)

REACTIONS (1)
  - Hepatic failure [Fatal]
